FAERS Safety Report 8555418-2 (Version None)
Quarter: 2012Q3

REPORT INFORMATION
  Report Type: 
  Country: None (occurrence: None)
  Receive Date: 20120731
  Receipt Date: 20110720
  Transmission Date: 20120928
  Serious: No
  Sender: FDA-Public Use
  Company Number: US-ASTRAZENECA-2011SE28005

PATIENT
  Age: 51 Year
  Sex: Female
  Weight: 72.6 kg

DRUGS (22)
  1. SEROQUEL [Suspect]
     Route: 048
  2. SEROQUEL [Suspect]
     Route: 048
  3. KLONOPIN [Concomitant]
     Route: 048
  4. BUPROPION HCL [Concomitant]
  5. SEROQUEL [Suspect]
     Route: 048
  6. SEROQUEL [Suspect]
     Route: 048
  7. SEROQUEL [Suspect]
     Indication: DEPRESSION
     Route: 048
     Dates: start: 20100101
  8. SEROQUEL [Suspect]
     Route: 048
  9. SEROQUEL [Suspect]
     Route: 048
  10. SEROQUEL [Suspect]
     Route: 048
  11. LAMICTAL [Concomitant]
     Route: 048
  12. SEROQUEL [Suspect]
     Route: 048
  13. EXCEDRIN (MIGRAINE) [Concomitant]
     Indication: MIGRAINE
  14. MELATONIN [Concomitant]
     Route: 048
  15. SIMVASTATIN [Concomitant]
     Route: 048
  16. WELLBUTRIN [Concomitant]
     Route: 048
  17. SEROQUEL [Suspect]
     Indication: BIPOLAR I DISORDER
     Route: 048
     Dates: start: 20100101
  18. SEROQUEL [Suspect]
     Indication: BIPOLAR DISORDER
     Route: 048
     Dates: start: 20100101
  19. SEROQUEL [Suspect]
     Route: 048
  20. SEROQUEL [Suspect]
     Route: 048
  21. SEROQUEL [Suspect]
     Route: 048
  22. SEROQUEL [Suspect]
     Route: 048

REACTIONS (13)
  - WEIGHT INCREASED [None]
  - ANGER [None]
  - MIGRAINE [None]
  - SLEEP-RELATED EATING DISORDER [None]
  - DRUG INEFFECTIVE [None]
  - DRUG DOSE OMISSION [None]
  - MALAISE [None]
  - DEPRESSION [None]
  - INCORRECT DOSE ADMINISTERED [None]
  - ANXIETY [None]
  - INSOMNIA [None]
  - MIDDLE INSOMNIA [None]
  - PANIC DISORDER [None]
